FAERS Safety Report 4368692-3 (Version None)
Quarter: 2004Q2

REPORT INFORMATION
  Report Type: 
  Country: None (occurrence: None)
  Receive Date: 20040528
  Receipt Date: 20040520
  Transmission Date: 20050107
  Serious: Yes (Life-Threatening, Hospitalization)
  Sender: FDA-Public Use
  Company Number: JP-JNJFOC-20040504663

PATIENT
  Age: 39 Year
  Sex: Female

DRUGS (4)
  1. LEVOFLOXACIN [Suspect]
     Indication: LARYNGOPHARYNGITIS
     Dosage: 500 MG, 1 IN 1 DAY, ORAL
     Route: 048
     Dates: start: 20021101, end: 20021107
  2. ACETAMINOPHEN [Concomitant]
  3. HERBAL MEDICINE (HERBAL PREPARATION) [Concomitant]
  4. VITAMIN A+D (VITAMIDYNE A AND D) [Concomitant]

REACTIONS (2)
  - HEPATITIS CHOLESTATIC [None]
  - HEPATITIS TOXIC [None]
